FAERS Safety Report 15934714 (Version 1)
Quarter: 2019Q1

REPORT INFORMATION
  Report Type: Spontaneous
  Country: US (occurrence: US)
  Receive Date: 20190207
  Receipt Date: 20190207
  Transmission Date: 20190417
  Serious: Yes (Other)
  Sender: FDA-Public Use
  Company Number: US-TARO-2019TAR00058

PATIENT
  Sex: Male

DRUGS (1)
  1. PHENYTOIN CHEWABLE TABLETS USP 50 MG [Suspect]
     Active Substance: PHENYTOIN

REACTIONS (2)
  - Seizure [Unknown]
  - Reaction to colouring [Unknown]
